FAERS Safety Report 4848492-8 (Version None)
Quarter: 2005Q4

REPORT INFORMATION
  Report Type: 
  Country: None (occurrence: None)
  Receive Date: 20051208
  Receipt Date: 20040831
  Transmission Date: 20060501
  Serious: Yes (Hospitalization, Other)
  Sender: FDA-Public Use
  Company Number: PHBS2004GR11600

PATIENT
  Age: 23 Year
  Sex: Male

DRUGS (3)
  1. TEGRETOL [Suspect]
     Indication: EPILEPSY
     Dosage: 600 MG/DAY
     Route: 048
     Dates: start: 19910101, end: 20040101
  2. TEGRETOL [Suspect]
     Dosage: 700 MG/DAY
     Route: 048
     Dates: start: 20040101, end: 20040101
  3. PARAFFIN [Concomitant]
     Indication: PROPHYLAXIS
     Route: 048
     Dates: start: 20040201, end: 20040601

REACTIONS (5)
  - APPENDICECTOMY [None]
  - CONVULSION [None]
  - DRUG LEVEL DECREASED [None]
  - INTESTINAL OBSTRUCTION [None]
  - WHITE BLOOD CELL COUNT DECREASED [None]
